FAERS Safety Report 18751658 (Version 1)
Quarter: 2021Q1

REPORT INFORMATION
  Report Type: Spontaneous
  Country: NO (occurrence: NO)
  Receive Date: 20210118
  Receipt Date: 20210118
  Transmission Date: 20210419
  Serious: Yes (Other)
  Sender: FDA-Public Use
  Company Number: NO-B.I. PHARMACEUTICALS,INC./RIDGEFIELD-2021-BI-076482

PATIENT
  Age: 69 Year
  Sex: Female

DRUGS (1)
  1. JARDIANCE [Suspect]
     Active Substance: EMPAGLIFLOZIN
     Indication: DIABETES MELLITUS
     Route: 048
     Dates: start: 20201201, end: 20210104

REACTIONS (5)
  - Fungal infection [Unknown]
  - Pruritus [Unknown]
  - Thirst [Unknown]
  - Urinary tract infection [Unknown]
  - Genital burning sensation [Unknown]

NARRATIVE: CASE EVENT DATE: 20210101
